FAERS Safety Report 6470808-X (Version None)
Quarter: 2009Q4

REPORT INFORMATION
  Report Type: 
  Country: None (occurrence: None)
  Receive Date: 20091203
  Receipt Date: 20090402
  Transmission Date: 20100525
  Serious: No
  Sender: FDA-Public Use
  Company Number: US-ABBOTT-09P-163-0566524-00

PATIENT
  Sex: Female
  Weight: 104.42 kg

DRUGS (2)
  1. MERIDIA [Suspect]
     Indication: WEIGHT CONTROL
     Dates: start: 20090401, end: 20090402
  2. MAXALT [Concomitant]
     Indication: MIGRAINE

REACTIONS (2)
  - DIZZINESS [None]
  - HEADACHE [None]
